FAERS Safety Report 7226091-0 (Version None)
Quarter: 2011Q1

REPORT INFORMATION
  Report Type: 
  Country: None (occurrence: None)
  Receive Date: 20110113
  Receipt Date: 20110110
  Transmission Date: 20110831
  Serious: Yes (Hospitalization)
  Sender: FDA-Public Use
  Company Number: FR-BRISTOL-MYERS SQUIBB COMPANY-15481641

PATIENT
  Age: 53 Year
  Sex: Male

DRUGS (2)
  1. ELISOR TABS [Suspect]
     Indication: TYPE IIA HYPERLIPIDAEMIA
     Dates: start: 20080101, end: 20100101
  2. EZETROL [Suspect]
     Indication: TYPE IIA HYPERLIPIDAEMIA
     Dates: start: 20080101, end: 20100101

REACTIONS (1)
  - CHOLELITHIASIS [None]
